FAERS Safety Report 7342544-9 (Version None)
Quarter: 2011Q1

REPORT INFORMATION
  Report Type: 
  Country: None (occurrence: None)
  Receive Date: 20110310
  Receipt Date: 20110307
  Transmission Date: 20110831
  Serious: Yes (Other)
  Sender: FDA-Public Use
  Company Number: US-BAYER-2011-021237

PATIENT
  Sex: Female

DRUGS (1)
  1. OCELLA [Suspect]
     Dosage: UNK
     Dates: start: 20090201

REACTIONS (1)
  - CONVULSION [None]
